FAERS Safety Report 8926058 (Version 1)
Quarter: 2012Q4

REPORT INFORMATION
  Report Type: 
  Country: US (occurrence: US)
  Receive Date: 20121126
  Receipt Date: 20121126
  Transmission Date: 20130627
  Serious: Yes (Other)
  Sender: FDA-Public Use
  Company Number: US-BAYER-2012-107792

PATIENT
  Age: 83 Year
  Sex: Female

DRUGS (3)
  1. NEXAVAR [Suspect]
     Indication: LIVER, CANCER OF
     Dosage: 400 mg, BID
     Dates: start: 20121010, end: 20121010
  2. NEXAVAR [Suspect]
     Indication: LIVER, CANCER OF
     Dosage: 200 mg, QOD
     Route: 048
     Dates: start: 20121011
  3. NEXAVAR [Suspect]
     Indication: LIVER, CANCER OF
     Dosage: 200 mg, BID
     Dates: start: 20121001, end: 2012

REACTIONS (4)
  - Diarrhoea [Recovering/Resolving]
  - Fatigue [None]
  - Bedridden [None]
  - Eating disorder [None]
